FAERS Safety Report 5585837-8 (Version None)
Quarter: 2008Q1

REPORT INFORMATION
  Report Type: 
  Country: None (occurrence: None)
  Receive Date: 20080109
  Receipt Date: 20071227
  Transmission Date: 20080703
  Serious: Yes (Other)
  Sender: FDA-Public Use
  Company Number: DE-GENENTECH-253818

PATIENT
  Sex: Male

DRUGS (4)
  1. AVASTIN [Suspect]
     Indication: RECTAL CANCER
  2. FOLINIC ACID [Suspect]
     Indication: RECTAL CANCER
  3. FLUOROURACIL [Suspect]
     Indication: RECTAL CANCER
  4. IRINOTECAN [Suspect]
     Indication: RECTAL CANCER

REACTIONS (2)
  - GASTROINTESTINAL NECROSIS [None]
  - METASTASES TO LIVER [None]
